FAERS Safety Report 8158926-1 (Version None)
Quarter: 2012Q1

REPORT INFORMATION
  Report Type: 
  Country: None (occurrence: None)
  Receive Date: 20120223
  Receipt Date: 20120214
  Transmission Date: 20120608
  Serious: No
  Sender: FDA-Public Use
  Company Number: US-BAYER-2012-015136

PATIENT
  Sex: Female

DRUGS (1)
  1. MIRENA [Suspect]
     Indication: CONTRACEPTION
     Dosage: 20 ?G/D, CONT
     Route: 015
     Dates: start: 20110901, end: 20111101

REACTIONS (2)
  - UNINTENTIONAL MEDICAL DEVICE REMOVAL BY PATIENT [None]
  - MEDICAL DEVICE DISCOMFORT [None]
